FAERS Safety Report 15613768 (Version 3)
Quarter: 2018Q4

REPORT INFORMATION
  Report Type: Report from Study
  Country: US (occurrence: US)
  Receive Date: 20181113
  Receipt Date: 20181227
  Transmission Date: 20190205
  Serious: Yes (Other)
  Sender: FDA-Public Use
  Company Number: US-SA-2017SA210395

PATIENT
  Age: 51 Year
  Sex: Female

DRUGS (3)
  1. ALEMTUZUMAB [Suspect]
     Active Substance: ALEMTUZUMAB
     Indication: MULTIPLE SCLEROSIS
     Dosage: 12 MG,QD
     Route: 041
     Dates: start: 20171009, end: 20171013
  2. ESTRIOL [Suspect]
     Active Substance: ESTRIOL
     Indication: DERMATITIS
     Dosage: UNK
     Dates: start: 2018, end: 2018
  3. ACICLOVIR [Concomitant]
     Active Substance: ACYCLOVIR
     Dosage: UNK

REACTIONS (12)
  - Productive cough [Not Recovered/Not Resolved]
  - Unevaluable event [Unknown]
  - Cystitis [Unknown]
  - Pneumonia [Unknown]
  - Upper-airway cough syndrome [Not Recovered/Not Resolved]
  - Fatigue [Recovering/Resolving]
  - Autoimmune disorder [Unknown]
  - Pain [Recovered/Resolved]
  - Fungal infection [Unknown]
  - Nausea [Recovering/Resolving]
  - Dermatitis [Recovering/Resolving]
  - Oral herpes [Not Recovered/Not Resolved]

NARRATIVE: CASE EVENT DATE: 20171014
